FAERS Safety Report 6105530-2 (Version None)
Quarter: 2009Q1

REPORT INFORMATION
  Report Type: 
  Country: None (occurrence: None)
  Receive Date: 20090306
  Receipt Date: 20090304
  Transmission Date: 20090719
  Serious: Yes (Other)
  Sender: FDA-Public Use
  Company Number: B0560409A

PATIENT
  Age: 79 Year
  Sex: Female

DRUGS (2)
  1. PAXIL [Suspect]
     Indication: DRUG USE FOR UNKNOWN INDICATION
     Route: 048
     Dates: start: 20090221
  2. UNKNOWN DRUG [Concomitant]
     Indication: HYPERTENSION

REACTIONS (5)
  - ABNORMAL DREAMS [None]
  - ASTHENIA [None]
  - FEELING ABNORMAL [None]
  - HALLUCINATION [None]
  - SEROTONIN SYNDROME [None]
